FAERS Safety Report 6504942-2 (Version None)
Quarter: 2009Q4

REPORT INFORMATION
  Report Type: 
  Country: None (occurrence: None)
  Receive Date: 20091218
  Receipt Date: 20091209
  Transmission Date: 20100525
  Serious: Yes (Other)
  Sender: FDA-Public Use
  Company Number: US-ROCHE-673936

PATIENT
  Sex: Female
  Weight: 89.8 kg

DRUGS (4)
  1. PEGASYS [Suspect]
     Indication: HEPATITIS C
     Dosage: FORM: PRE-FILLED SYRINGE
     Route: 065
     Dates: start: 20081214
  2. COPEGUS [Suspect]
     Indication: HEPATITIS C
     Route: 065
     Dates: start: 20081214
  3. COPEGUS [Suspect]
     Dosage: DOSAGE REDUCED
     Route: 065
     Dates: start: 20090801
  4. LEVOTHYROXINE SODIUM [Suspect]
     Indication: THYROID FUNCTION TEST ABNORMAL
     Route: 065
     Dates: start: 20090901

REACTIONS (12)
  - ASTHENIA [None]
  - BLOOD IRON DECREASED [None]
  - DECREASED APPETITE [None]
  - DEHYDRATION [None]
  - DIARRHOEA [None]
  - DIZZINESS [None]
  - HYPOPHAGIA [None]
  - LIVER FUNCTION TEST ABNORMAL [None]
  - LOSS OF CONSCIOUSNESS [None]
  - RED BLOOD CELL COUNT DECREASED [None]
  - THYROID FUNCTION TEST ABNORMAL [None]
  - WEIGHT DECREASED [None]
